FAERS Safety Report 5658074-6 (Version None)
Quarter: 2008Q1

REPORT INFORMATION
  Report Type: 
  Country: None (occurrence: None)
  Receive Date: 20080310
  Receipt Date: 20061215
  Transmission Date: 20080703
  Serious: No
  Sender: FDA-Public Use
  Company Number: US-BAYER-200615011BCC

PATIENT
  Age: 55 Year
  Sex: Female
  Weight: 76 kg

DRUGS (12)
  1. ALEVE [Suspect]
     Indication: HEADACHE
     Dosage: TOTAL DAILY DOSE: 440 MG  UNIT DOSE: 220 MG
     Route: 048
     Dates: start: 20061201
  2. VALIUM [Concomitant]
  3. GEODON [Concomitant]
  4. CYMBALTA [Concomitant]
  5. OMEPRAZOLE [Concomitant]
  6. AMARYL [Concomitant]
  7. LIPITOR [Concomitant]
  8. BUSPAR [Concomitant]
  9. REQUIP [Concomitant]
  10. PAXIL [Concomitant]
  11. LAMICTAL [Concomitant]
  12. SYNTHROID [Concomitant]

REACTIONS (1)
  - ABDOMINAL PAIN UPPER [None]
